FAERS Safety Report 19919210 (Version 1)
Quarter: 2021Q4

REPORT INFORMATION
  Report Type: Spontaneous
  Country: US (occurrence: US)
  Receive Date: 20211004
  Receipt Date: 20211004
  Transmission Date: 20220303
  Serious: No
  Sender: FDA-Public Use
  Company Number: US-009507513-2109USA007082

PATIENT
  Sex: Male

DRUGS (1)
  1. STEGLATRO [Suspect]
     Active Substance: ERTUGLIFLOZIN PIDOLATE
     Indication: Blood glucose
     Dosage: UNK UNK, QPM
     Route: 048
     Dates: start: 2021

REACTIONS (2)
  - Blood glucose increased [Unknown]
  - Wrong schedule [Unknown]

NARRATIVE: CASE EVENT DATE: 20210101
